FAERS Safety Report 6576914-3 (Version None)
Quarter: 2010Q1

REPORT INFORMATION
  Report Type: 
  Country: None (occurrence: None)
  Receive Date: 20100210
  Receipt Date: 20100203
  Transmission Date: 20100710
  Serious: Yes (Hospitalization)
  Sender: FDA-Public Use
  Company Number: B0632272A

PATIENT
  Sex: Female

DRUGS (1)
  1. ZOVIRAX [Suspect]
     Indication: HERPES ZOSTER
     Dosage: 1000MG EVERY 3 DAYS
     Route: 042
     Dates: start: 20091202, end: 20091207

REACTIONS (2)
  - RENAL COLIC [None]
  - RENAL FAILURE ACUTE [None]
